FAERS Safety Report 8145270-1 (Version None)
Quarter: 2012Q1

REPORT INFORMATION
  Report Type: 
  Country: None (occurrence: None)
  Receive Date: 20120217
  Receipt Date: 20120208
  Transmission Date: 20120608
  Serious: Yes (Hospitalization, Other)
  Sender: FDA-Public Use
  Company Number: PHHY2012SI011056

PATIENT
  Age: 33 Year
  Sex: Male

DRUGS (17)
  1. MAXXIMUM GLUTAMINE [Suspect]
  2. EPHEDRINE SUL CAP [Suspect]
  3. MAGNESIUM [Suspect]
  4. TESTOVIS [Suspect]
  5. GROWTH HORMONE [Suspect]
  6. ULTRA BURNER II [Suspect]
  7. NOX3 [Suspect]
  8. TAMOXIFEN CITRATE [Suspect]
  9. RELPAX [Suspect]
  10. TRAMADOL HCL [Suspect]
  11. CLENBUTEROL [Suspect]
  12. MAXXIUM BCCA PLUS [Suspect]
  13. NEXIUM [Suspect]
  14. CUT-STACK 150 [Suspect]
  15. NOVORAPID [Suspect]
     Dosage: 8- 10 U, UNK
  16. CAFFEINE [Suspect]
     Dosage: UNK
  17. CIALIS [Suspect]

REACTIONS (13)
  - BLOOD CORTISOL INCREASED [None]
  - BLOOD TESTOSTERONE INCREASED [None]
  - OESTRADIOL INCREASED [None]
  - BLOOD FOLLICLE STIMULATING HORMONE DECREASED [None]
  - CONVULSION [None]
  - HYPOGLYCAEMIA [None]
  - BLOOD PROLACTIN INCREASED [None]
  - INSULIN-LIKE GROWTH FACTOR INCREASED [None]
  - INTENTIONAL DRUG MISUSE [None]
  - HORMONE LEVEL ABNORMAL [None]
  - BLOOD LUTEINISING HORMONE DECREASED [None]
  - ALTERED STATE OF CONSCIOUSNESS [None]
  - BLOOD GROWTH HORMONE INCREASED [None]
